FAERS Safety Report 23797079 (Version 1)
Quarter: 2024Q2

REPORT INFORMATION
  Report Type: Spontaneous
  Country: CN (occurrence: CN)
  Receive Date: 20240430
  Receipt Date: 20240430
  Transmission Date: 20240716
  Serious: Yes (Other)
  Sender: FDA-Public Use
  Company Number: CN-JNJFOC-20240469955

PATIENT
  Age: 29 Year
  Sex: Male
  Weight: 87 kg

DRUGS (2)
  1. RISPERDAL [Suspect]
     Active Substance: RISPERIDONE
     Indication: Psychotic disorder
     Route: 048
     Dates: start: 20200401, end: 20240422
  2. OLANZAPINE [Concomitant]
     Active Substance: OLANZAPINE
     Indication: Psychotic disorder
     Route: 048
     Dates: start: 20200301, end: 20240422

REACTIONS (1)
  - Azoospermia [Not Recovered/Not Resolved]

NARRATIVE: CASE EVENT DATE: 20230101
